FAERS Safety Report 10064422 (Version 1)
Quarter: 2014Q2

REPORT INFORMATION
  Report Type: Spontaneous
  Country: GB (occurrence: None)
  Receive Date: 20140404
  Receipt Date: 20140404
  Transmission Date: 20141212
  Serious: Yes (Hospitalization, Other)
  Sender: FDA-Public Use
  Company Number: 2266698

PATIENT
  Age: 67 Year
  Sex: Male

DRUGS (5)
  1. GEMCITABINE HYDROCHLORIDE [Suspect]
     Indication: BLADDER CANCER
     Dosage: 1950 MG MILLIGRAM(S), CYCLICAL, INTRAVENOUS
     Route: 042
     Dates: start: 20130523, end: 20130905
  2. CISPLATIN [Suspect]
     Indication: BLADDER CANCER
     Dosage: 135 MG MILLIGRAM(S), CYCLICAL, INTRAVENOUS
     Route: 042
     Dates: start: 20130523, end: 20130829
  3. METOCLOPRAMIDE [Concomitant]
  4. OMEPRAZOLE [Concomitant]
  5. ANTIBIOTIC [Concomitant]

REACTIONS (5)
  - Deep vein thrombosis [None]
  - Pain in extremity [None]
  - Infected dermal cyst [None]
  - Thrombocytopenia [None]
  - Dysuria [None]
